FAERS Safety Report 16170781 (Version 1)
Quarter: 2019Q2

REPORT INFORMATION
  Report Type: Spontaneous
  Country: GB (occurrence: GB)
  Receive Date: 20190408
  Receipt Date: 20190408
  Transmission Date: 20190711
  Serious: Yes (Disabling, Other)
  Sender: FDA-Public Use
  Company Number: GB-TEVA-2019-GB-1034353

PATIENT
  Age: 67 Year
  Sex: Male
  Weight: 86.17 kg

DRUGS (4)
  1. OFLOXACIN. [Suspect]
     Active Substance: OFLOXACIN
     Indication: PROSTATITIS
     Dosage: 400 MILLIGRAM DAILY;
     Route: 048
     Dates: start: 20190213, end: 20190219
  2. GLUCOSAMINE [Concomitant]
     Active Substance: GLUCOSAMINE
  3. CHONDROITIN [Concomitant]
     Active Substance: CHONDROITIN
  4. SODIUM VALPROATE [Concomitant]
     Active Substance: VALPROATE SODIUM

REACTIONS (3)
  - Tendon pain [Not Recovered/Not Resolved]
  - Tendonitis [Not Recovered/Not Resolved]
  - Muscle spasms [Unknown]

NARRATIVE: CASE EVENT DATE: 20190219
